FAERS Safety Report 19184705 (Version 1)
Quarter: 2021Q2

REPORT INFORMATION
  Report Type: Report from Study
  Country: JP (occurrence: JP)
  Receive Date: 20210427
  Receipt Date: 20210427
  Transmission Date: 20210717
  Serious: Yes (Death, Hospitalization, Other)
  Sender: FDA-Public Use
  Company Number: PHHY2013JP174825

PATIENT
  Age: 30 Year
  Sex: Male
  Weight: 55 kg

DRUGS (3)
  1. VOTRIENT [Suspect]
     Active Substance: PAZOPANIB HYDROCHLORIDE
     Dosage: 600 MG, QD
     Route: 048
  2. VOTRIENT [Suspect]
     Active Substance: PAZOPANIB HYDROCHLORIDE
     Indication: EXTRA-OSSEOUS EWING^S SARCOMA
     Dosage: 800 MG, QD
     Route: 048
     Dates: start: 20130307, end: 20130411
  3. VOTRIENT [Suspect]
     Active Substance: PAZOPANIB HYDROCHLORIDE
     Dosage: 800 MG, QD
     Route: 048
     Dates: start: 20130417, end: 20130504

REACTIONS (5)
  - Pneumothorax [Recovered/Resolved]
  - Herpes zoster [Recovered/Resolved]
  - Tracheo-oesophageal fistula [Not Recovered/Not Resolved]
  - Extra-osseous Ewing^s sarcoma [Fatal]
  - Hepatic function abnormal [Recovered/Resolved]

NARRATIVE: CASE EVENT DATE: 20130311
